FAERS Safety Report 7183268-0 (Version None)
Quarter: 2010Q4

REPORT INFORMATION
  Report Type: 
  Country: None (occurrence: None)
  Receive Date: 20101222
  Receipt Date: 20100527
  Transmission Date: 20110411
  Serious: No
  Sender: FDA-Public Use
  Company Number: A0861696A

PATIENT

DRUGS (1)
  1. FLONASE [Suspect]
     Route: 045

REACTIONS (1)
  - DRUG INEFFECTIVE [None]
